FAERS Safety Report 13421373 (Version 2)
Quarter: 2017Q2

REPORT INFORMATION
  Report Type: Spontaneous
  Country: TR (occurrence: TR)
  Receive Date: 20170410
  Receipt Date: 20170530
  Transmission Date: 20170830
  Serious: Yes (Death)
  Sender: FDA-Public Use
  Company Number: TR-009507513-1704TUR002198

PATIENT
  Age: 48 Year
  Sex: Female

DRUGS (2)
  1. DAPTOMYCIN. [Suspect]
     Active Substance: DAPTOMYCIN
     Indication: MUCORMYCOSIS
     Dosage: 350 MG, QD
     Route: 042
  2. MEROPENEM. [Suspect]
     Active Substance: MEROPENEM
     Indication: MUCORMYCOSIS
     Dosage: 1 G, QD
     Route: 042

REACTIONS (3)
  - Pneumonia [Fatal]
  - Encephalopathy [Fatal]
  - Electrolyte depletion [Fatal]
